FAERS Safety Report 5054495-3 (Version None)
Quarter: 2006Q2

REPORT INFORMATION
  Report Type: 
  Country: None (occurrence: None)
  Receive Date: 20060616
  Receipt Date: 20060508
  Transmission Date: 20061013
  Serious: Yes (Hospitalization)
  Sender: FDA-Public Use
  Company Number: 223680

PATIENT
  Age: 51 Year
  Sex: Male
  Weight: 111.1 kg

DRUGS (4)
  1. AVASTIN [Suspect]
     Indication: COLON CANCER METASTATIC
     Dosage: 550 Q2W, INTRAVENOUS
     Route: 042
     Dates: start: 20050615
  2. FLUOROURACIL [Concomitant]
  3. LEUCOVORIN CALCIUM [Concomitant]
  4. OXALIPLATIN (OXALIPLATIN) [Concomitant]

REACTIONS (1)
  - NEPHROTIC SYNDROME [None]
